FAERS Safety Report 5825256-X (Version None)
Quarter: 2008Q3

REPORT INFORMATION
  Report Type: 
  Country: None (occurrence: None)
  Receive Date: 20080729
  Receipt Date: 20080718
  Transmission Date: 20090109
  Serious: Yes (Other)
  Sender: FDA-Public Use
  Company Number: US-WYE-H04479308

PATIENT
  Sex: Male
  Weight: 61.29 kg

DRUGS (2)
  1. ROBITUSSIN COUGH COLD AND FLU NIGHTTIME [Suspect]
     Indication: FEELING COLD
     Dosage: 1 TEASPOON X 1
     Route: 048
     Dates: start: 20080612, end: 20080612
  2. ROBITUSSIN COUGH COLD AND FLU NIGHTTIME [Suspect]
     Indication: COLD SWEAT

REACTIONS (5)
  - FACIAL BONES FRACTURE [None]
  - FALL [None]
  - LOSS OF CONSCIOUSNESS [None]
  - MUSCLE SPASMS [None]
  - SYNCOPE [None]
